FAERS Safety Report 10744422 (Version 1)
Quarter: 2015Q1

REPORT INFORMATION
  Report Type: Spontaneous
  Country: DE (occurrence: DE)
  Receive Date: 20150128
  Receipt Date: 20150128
  Transmission Date: 20150721
  Serious: Yes (Hospitalization)
  Sender: FDA-Public Use
  Company Number: DE-JNJFOC-20150108934

PATIENT
  Age: 17 Year
  Sex: Female
  Weight: 74 kg

DRUGS (3)
  1. TIAPRIDE [Suspect]
     Active Substance: TIAPRIDE
     Indication: TIC
     Route: 048
     Dates: start: 201410, end: 20141209
  2. ORTHO EVRA [Suspect]
     Active Substance: ETHINYL ESTRADIOL\NORELGESTROMIN
     Indication: CONTRACEPTION
     Route: 062
     Dates: end: 20141209
  3. FLUVOXAMIN [Concomitant]
     Active Substance: FLUVOXAMINE MALEATE
     Indication: ANXIETY DISORDER
     Route: 048
     Dates: start: 2012

REACTIONS (1)
  - Pulmonary thrombosis [Unknown]

NARRATIVE: CASE EVENT DATE: 20141209
